FAERS Safety Report 20329182 (Version 2)
Quarter: 2022Q1

REPORT INFORMATION
  Report Type: Report from Study
  Country: CA (occurrence: CA)
  Receive Date: 20220112
  Receipt Date: 20220311
  Transmission Date: 20220423
  Serious: Yes (Other)
  Sender: FDA-Public Use
  Company Number: CA-JNJFOC-20200938272

PATIENT
  Age: 13 Year
  Sex: Male
  Weight: 66 kg

DRUGS (4)
  1. REMICADE [Suspect]
     Active Substance: INFLIXIMAB
     Indication: Crohn^s disease
     Route: 042
     Dates: start: 20200917
  2. REMICADE [Suspect]
     Active Substance: INFLIXIMAB
     Dosage: 2ND INFLIXIMAB INFUSION.
     Route: 042
     Dates: start: 20201001
  3. REMICADE [Suspect]
     Active Substance: INFLIXIMAB
     Route: 042
  4. REMICADE [Suspect]
     Active Substance: INFLIXIMAB
     Route: 042

REACTIONS (4)
  - Crohn^s disease [Unknown]
  - Drug level decreased [Unknown]
  - Off label use [Unknown]
  - Product use issue [Unknown]

NARRATIVE: CASE EVENT DATE: 20200917
